FAERS Safety Report 15382217 (Version 2)
Quarter: 2019Q3

REPORT INFORMATION
  Report Type: Spontaneous
  Country: US (occurrence: US)
  Receive Date: 20180913
  Receipt Date: 20190912
  Transmission Date: 20191004
  Serious: No
  Sender: FDA-Public Use
  Company Number: US-ASTELLAS-2018US009168

PATIENT
  Sex: Male

DRUGS (1)
  1. XTANDI [Suspect]
     Active Substance: ENZALUTAMIDE
     Indication: PROSTATE CANCER
     Dosage: 160 MG (FOUR CAPSULES), ONCE DAILY
     Route: 048

REACTIONS (7)
  - Arthralgia [Unknown]
  - Hot flush [Unknown]
  - Malaise [Unknown]
  - Peripheral swelling [Unknown]
  - Hyperhidrosis [Unknown]
  - Fatigue [Unknown]
  - Treatment noncompliance [Unknown]
